FAERS Safety Report 19036079 (Version 1)
Quarter: 2021Q1

REPORT INFORMATION
  Report Type: Spontaneous
  Country: US (occurrence: US)
  Receive Date: 20210321
  Receipt Date: 20210321
  Transmission Date: 20210420
  Serious: No
  Sender: FDA-Public Use
  Company Number: US-ORGANON-O2103USA000605

PATIENT
  Sex: Female

DRUGS (1)
  1. ASMANEX HFA [Suspect]
     Active Substance: MOMETASONE FUROATE
     Dosage: 1 PUFF TWICE DAILY; 200 MCG, 120 DOSE UNIT
     Dates: start: 2021

REACTIONS (5)
  - Device malfunction [Unknown]
  - Incorrect dose administered [Unknown]
  - Product dose omission issue [Unknown]
  - Circumstance or information capable of leading to medication error [Unknown]
  - Poor quality device used [Unknown]

NARRATIVE: CASE EVENT DATE: 2021
